FAERS Safety Report 5369826-4 (Version None)
Quarter: 2007Q2

REPORT INFORMATION
  Report Type: 
  Country: None (occurrence: None)
  Receive Date: 20070621
  Receipt Date: 20070608
  Transmission Date: 20071010
  Serious: Yes (Hospitalization, Disabling, Other)
  Sender: FDA-Public Use
  Company Number: L07-CAN-02608-01

PATIENT
  Age: 29 Year
  Sex: Female

DRUGS (3)
  1. ESCITALOPRAM [Suspect]
     Indication: DEPRESSION
     Dosage: 10 MG QD
  2. ESCITALOPRAM [Suspect]
     Indication: DEPRESSION
  3. ZOPICLONE [Concomitant]
     Indication: INSOMNIA
     Dosage: 7.5 MG QHS PO
     Route: 048
     Dates: end: 20070111

REACTIONS (12)
  - DEPRESSION [None]
  - EYE PAIN [None]
  - FLAT AFFECT [None]
  - IMPAIRED WORK ABILITY [None]
  - INTENTIONAL OVERDOSE [None]
  - PARTNER STRESS [None]
  - PHOTOPHOBIA [None]
  - PHOTOSENSITIVITY REACTION [None]
  - SUICIDAL IDEATION [None]
  - SUICIDE ATTEMPT [None]
  - VISION BLURRED [None]
  - VISUAL ACUITY REDUCED [None]
